FAERS Safety Report 6958787-X (Version None)
Quarter: 2010Q3

REPORT INFORMATION
  Report Type: 
  Country: None (occurrence: None)
  Receive Date: 20100831
  Receipt Date: 20100819
  Transmission Date: 20110219
  Serious: Yes (Other)
  Sender: FDA-Public Use
  Company Number: PHHY2010JP45109

PATIENT
  Sex: Female
  Weight: 36 kg

DRUGS (11)
  1. LAMISIL [Suspect]
     Dosage: 125 MG/DAY
     Route: 048
     Dates: start: 20100510, end: 20100707
  2. FAMOTIDINE [Concomitant]
     Indication: REFLUX OESOPHAGITIS
     Dosage: 20 MG
     Route: 048
     Dates: start: 20020601
  3. EXCEGRAN [Concomitant]
     Indication: EPILEPSY
     Dosage: 300 MG
     Route: 048
     Dates: start: 20040527
  4. PHENOBARBITAL SODIUM 100MG CAP [Concomitant]
     Indication: EPILEPSY
     Dosage: 1 G
     Route: 048
     Dates: start: 20050914
  5. THYRADIN S [Concomitant]
     Indication: HYPOTHYROIDISM
     Dosage: 100 UG
     Route: 048
     Dates: start: 20020601
  6. LANIRAPID [Concomitant]
     Indication: ATRIAL FIBRILLATION
     Dosage: 0.05 MG
     Route: 048
     Dates: start: 20020601
  7. CYTARABINE [Concomitant]
     Indication: CARDIAC FAILURE CHRONIC
     Dosage: 25 MG
     Route: 048
     Dates: start: 20050401
  8. LASIX [Concomitant]
     Indication: CARDIAC FAILURE CHRONIC
     Dosage: 20 MG
     Route: 048
     Dates: start: 20040122
  9. FRANDOL [Concomitant]
     Indication: ANGINA PECTORIS
     Dosage: 40 MG
     Route: 061
     Dates: start: 20040402
  10. MAGNESIUM OXIDE [Concomitant]
     Indication: CONSTIPATION
     Dosage: 1 G
     Route: 048
     Dates: start: 20070310
  11. WARFARIN SODIUM [Concomitant]
     Indication: ATRIAL FIBRILLATION
     Dosage: 2 G
     Route: 048
     Dates: start: 20020601

REACTIONS (15)
  - ALANINE AMINOTRANSFERASE INCREASED [None]
  - ASPARTATE AMINOTRANSFERASE INCREASED [None]
  - ASTHENIA [None]
  - ASTHMA [None]
  - BLOOD BILIRUBIN INCREASED [None]
  - BLOOD CREATINE PHOSPHOKINASE INCREASED [None]
  - COGNITIVE DISORDER [None]
  - DELUSION [None]
  - GAMMA-GLUTAMYLTRANSFERASE INCREASED [None]
  - MALAISE [None]
  - MYALGIA [None]
  - MYOGLOBIN BLOOD INCREASED [None]
  - PNEUMONIA [None]
  - RHABDOMYOLYSIS [None]
  - SCIATICA [None]
